FAERS Safety Report 8919401 (Version 2)
Quarter: 2012Q4

REPORT INFORMATION
  Report Type: 
  Country: DE (occurrence: DE)
  Receive Date: 20121121
  Receipt Date: 20121203
  Transmission Date: 20130627
  Serious: Yes (Other)
  Sender: FDA-Public Use
  Company Number: DE-JNJFOC-20121109185

PATIENT
  Age: 68 Year
  Sex: Male
  Weight: 75 kg

DRUGS (11)
  1. REMICADE [Suspect]
     Indication: COLITIS ULCERATIVE
     Route: 042
     Dates: start: 20110202
  2. REMICADE [Suspect]
     Indication: COLITIS ULCERATIVE
     Route: 042
     Dates: start: 20120926, end: 20120926
  3. PREDNISOLONE [Concomitant]
     Indication: PREMEDICATION
     Route: 042
     Dates: start: 20120926
  4. RAMIPRIL [Concomitant]
     Indication: HYPERTENSION
     Route: 065
  5. GLIMEPIRIDE [Concomitant]
     Indication: DIABETES MELLITUS
     Route: 065
  6. PROTAPHANE [Concomitant]
     Indication: DIABETES MELLITUS
     Dosage: 4 ^E^
     Route: 065
  7. PANTOPRAZOL [Concomitant]
     Indication: GASTROOESOPHAGEAL REFLUX DISEASE
     Route: 065
  8. MEZAVANT [Concomitant]
     Indication: PREMEDICATION
     Route: 048
     Dates: start: 20100902
  9. MEZAVANT [Concomitant]
     Indication: COLITIS ULCERATIVE
     Route: 048
     Dates: start: 20100902
  10. BUDENOFALK [Concomitant]
     Indication: PREMEDICATION
     Dosage: ^rektalschaum^
     Route: 054
  11. BUDENOFALK [Concomitant]
     Indication: COLITIS ULCERATIVE
     Dosage: ^rektalschaum^
     Route: 054

REACTIONS (17)
  - Gastroenteritis [Recovered/Resolved]
  - Blood pressure decreased [Recovered/Resolved]
  - Infusion related reaction [Recovering/Resolving]
  - Chest discomfort [Recovering/Resolving]
  - Heart rate increased [Recovered/Resolved]
  - Chest pain [Recovered/Resolved]
  - Face oedema [Recovered/Resolved]
  - Dyspnoea [Recovered/Resolved]
  - Palpitations [Recovered/Resolved]
  - Defaecation urgency [Recovering/Resolving]
  - Gastrointestinal sounds abnormal [Recovering/Resolving]
  - Restlessness [Recovering/Resolving]
  - Flushing [Recovering/Resolving]
  - Abdominal pain upper [Recovered/Resolved]
  - Rash [Recovered/Resolved]
  - Nausea [Recovered/Resolved]
  - Confusional state [Recovered/Resolved]
